FAERS Safety Report 7974431-7 (Version None)
Quarter: 2011Q4

REPORT INFORMATION
  Report Type: 
  Country: None (occurrence: None)
  Receive Date: 20111213
  Receipt Date: 20111208
  Transmission Date: 20120403
  Serious: Yes (Life-Threatening, Hospitalization)
  Sender: FDA-Public Use
  Company Number: US-ASTRAZENECA-2010SE22647

PATIENT
  Age: 778 Month
  Sex: Female

DRUGS (8)
  1. SEROQUEL [Suspect]
     Route: 048
  2. SEROQUEL [Suspect]
     Route: 048
  3. SEROQUEL [Suspect]
     Route: 048
  4. SEROQUEL [Suspect]
     Route: 048
  5. SEROQUEL [Suspect]
     Indication: PAIN
     Dosage: ONE TABLET IN THE MORNING AND THREE TABLETS IN THE EVENING
     Route: 048
  6. SEROQUEL [Suspect]
     Route: 048
  7. SEROQUEL [Suspect]
     Indication: SLEEP DISORDER
     Dosage: ONE TABLET IN THE MORNING AND THREE TABLETS IN THE EVENING
     Route: 048
  8. SEROQUEL [Suspect]
     Route: 048

REACTIONS (7)
  - MALAISE [None]
  - CARDIAC DISORDER [None]
  - DRUG DOSE OMISSION [None]
  - INSOMNIA [None]
  - THERAPEUTIC RESPONSE UNEXPECTED [None]
  - APPARENT DEATH [None]
  - OFF LABEL USE [None]
